FAERS Safety Report 12217452 (Version 1)
Quarter: 2016Q1

REPORT INFORMATION
  Report Type: Spontaneous
  Country: US (occurrence: None)
  Receive Date: 20160328
  Receipt Date: 20160328
  Transmission Date: 20160526
  Serious: Yes (Other)
  Sender: FDA-Public Use
  Company Number: None

PATIENT
  Age: 47 Year
  Sex: Female
  Weight: 108.86 kg

DRUGS (6)
  1. NUEDEXTA [Suspect]
     Active Substance: DEXTROMETHORPHAN HYDROBROMIDE\QUINIDINE SULFATE
     Indication: SEIZURE
     Route: 048
     Dates: start: 20160302, end: 20160324
  2. VIMPAT [Concomitant]
     Active Substance: LACOSAMIDE
  3. PHENOBARBITAL. [Concomitant]
     Active Substance: PHENOBARBITAL
  4. ATROVENT [Concomitant]
     Active Substance: IPRATROPIUM BROMIDE
  5. SYMBICORT [Concomitant]
     Active Substance: BUDESONIDE\FORMOTEROL FUMARATE DIHYDRATE
  6. HYDROCODONE [Concomitant]
     Active Substance: HYDROCODONE

REACTIONS (8)
  - Epilepsy [None]
  - Injury [None]
  - Myocardial infarction [None]
  - Chest pain [None]
  - Asthma [None]
  - Visual impairment [None]
  - Condition aggravated [None]
  - Fall [None]

NARRATIVE: CASE EVENT DATE: 20160302
